FAERS Safety Report 6663022-6 (Version None)
Quarter: 2010Q2

REPORT INFORMATION
  Report Type: 
  Country: None (occurrence: None)
  Receive Date: 20100401
  Receipt Date: 20100322
  Transmission Date: 20101027
  Serious: Yes (Other)
  Sender: FDA-Public Use
  Company Number: KR-JNJFOC-20100301666

PATIENT
  Age: 56 Year
  Sex: Female

DRUGS (6)
  1. ABCIXIMAB [Suspect]
     Indication: PERCUTANEOUS CORONARY INTERVENTION
     Route: 042
  2. ASPIRIN [Concomitant]
  3. CLOPIDOGREL [Concomitant]
  4. HEPARIN [Concomitant]
     Dosage: 12 UNITS/KG/HR
     Route: 042
  5. HEPARIN [Concomitant]
     Dosage: 3000 UNIT BOLUS
     Route: 042
  6. ANTIHYPERTENSION MEDICATION [Concomitant]

REACTIONS (3)
  - CATHETER SITE HAEMORRHAGE [None]
  - COMPARTMENT SYNDROME [None]
  - THROMBOCYTOPENIA [None]
